FAERS Safety Report 16026049 (Version 1)
Quarter: 2019Q1

REPORT INFORMATION
  Report Type: Spontaneous
  Country: IT (occurrence: IT)
  Receive Date: 20190302
  Receipt Date: 20190302
  Transmission Date: 20190418
  Serious: Yes (Hospitalization, Other)
  Sender: FDA-Public Use
  Company Number: IT-AUROBINDO-AUR-APL-2019-009949

PATIENT

DRUGS (1)
  1. DONEPEZIL FILM COATED TABLETS [Suspect]
     Active Substance: DONEPEZIL
     Indication: PRODUCT USED FOR UNKNOWN INDICATION
     Dosage: 14 DOSAGE FORM TOTAL
     Route: 048
     Dates: start: 20180322, end: 20180322

REACTIONS (5)
  - Bradycardia [Recovered/Resolved]
  - Drug abuse [Recovered/Resolved]
  - Hyperhidrosis [Recovered/Resolved]
  - Suicide attempt [Recovered/Resolved]
  - Muscular weakness [Recovered/Resolved]

NARRATIVE: CASE EVENT DATE: 20180322
